FAERS Safety Report 18981360 (Version 1)
Quarter: 2021Q1

REPORT INFORMATION
  Report Type: Spontaneous
  Country: DE (occurrence: DK)
  Receive Date: 20210308
  Receipt Date: 20210308
  Transmission Date: 20210420
  Serious: Yes (Other)
  Sender: FDA-Public Use
  Company Number: DK-ENDO PHARMACEUTICALS INC-2021-001469

PATIENT
  Age: 19 Year
  Sex: Male
  Weight: 54 kg

DRUGS (1)
  1. AVEED [Suspect]
     Active Substance: TESTOSTERONE UNDECANOATE
     Indication: TRANSGENDER HORMONAL THERAPY
     Dosage: 4 ML (STRENGTH: 1000 MG/DOSIS)
     Route: 030
     Dates: start: 20161104

REACTIONS (2)
  - Lower respiratory tract infection [Recovered/Resolved]
  - Haemoglobin increased [Not Recovered/Not Resolved]

NARRATIVE: CASE EVENT DATE: 201611
